FAERS Safety Report 17209863 (Version 1)
Quarter: 2019Q4

REPORT INFORMATION
  Report Type: Spontaneous
  Country: JP (occurrence: JP)
  Receive Date: 20191227
  Receipt Date: 20191227
  Transmission Date: 20200122
  Serious: Yes (Death, Hospitalization, Other)
  Sender: FDA-Public Use
  Company Number: JP-ASTRAZENECA-2019SF88573

PATIENT
  Age: 66 Year
  Sex: Male

DRUGS (1)
  1. IMFINZI [Suspect]
     Active Substance: DURVALUMAB
     Indication: NON-SMALL CELL LUNG CANCER
     Route: 041
     Dates: start: 20190910, end: 20191010

REACTIONS (4)
  - Malignant pleural effusion [Unknown]
  - Respiratory failure [Fatal]
  - Pneumonia bacterial [Unknown]
  - Metastases to oesophagus [Unknown]

NARRATIVE: CASE EVENT DATE: 2019
